FAERS Safety Report 20587393 (Version 1)
Quarter: 2022Q1

REPORT INFORMATION
  Report Type: Spontaneous
  Country: FR (occurrence: FR)
  Receive Date: 20220314
  Receipt Date: 20220314
  Transmission Date: 20220423
  Serious: Yes (Hospitalization)
  Sender: FDA-Public Use
  Company Number: None

PATIENT
  Age: 73 Year
  Sex: Female
  Weight: 73 kg

DRUGS (5)
  1. LOVENOX [Suspect]
     Active Substance: ENOXAPARIN SODIUM
     Indication: Psychotic disorder
     Dosage: 12000 IU, QD
     Dates: start: 20210406, end: 20210421
  2. LERCANIDIPINE [Concomitant]
     Active Substance: LERCANIDIPINE
  3. BISOPROLOL [Concomitant]
     Active Substance: BISOPROLOL
  4. EUPANTOL [Concomitant]
     Active Substance: PANTOPRAZOLE SODIUM
  5. NEO-MERCAZOLE [Concomitant]
     Active Substance: CARBIMAZOLE

REACTIONS (1)
  - Haematoma muscle [Recovered/Resolved]
